FAERS Safety Report 21719435 (Version 8)
Quarter: 2023Q2

REPORT INFORMATION
  Report Type: Spontaneous
  Country: US (occurrence: None)
  Receive Date: 20221213
  Receipt Date: 20230519
  Transmission Date: 20230722
  Serious: Yes (Hospitalization, Other)
  Sender: FDA-Public Use
  Company Number: US-ROCHE-3232005

PATIENT
  Age: 62 Year
  Sex: Female
  Weight: 97.61 kg

DRUGS (13)
  1. AVASTIN [Suspect]
     Active Substance: BEVACIZUMAB
     Indication: Diabetic retinopathy
     Route: 050
     Dates: start: 20200814
  2. AVASTIN [Suspect]
     Active Substance: BEVACIZUMAB
     Indication: Diabetic retinal oedema
  3. ANCEF (UNITED STATES) [Concomitant]
  4. FLUCONAZOLE [Concomitant]
     Active Substance: FLUCONAZOLE
  5. LORTAB [Concomitant]
     Active Substance: ACETAMINOPHEN\HYDROCODONE BITARTRATE
  6. LIDOCAINE [Concomitant]
     Active Substance: LIDOCAINE
  7. BUPIVACAINE [Concomitant]
     Active Substance: BUPIVACAINE
  8. HYDROCHLOROTHIAZIDE [Concomitant]
     Active Substance: HYDROCHLOROTHIAZIDE
  9. METFORMIN [Concomitant]
     Active Substance: METFORMIN HYDROCHLORIDE
  10. GLIPIZIDE [Concomitant]
     Active Substance: GLIPIZIDE
  11. EZETIMIBE [Concomitant]
     Active Substance: EZETIMIBE
  12. TORADOL [Concomitant]
     Active Substance: KETOROLAC TROMETHAMINE
  13. LOSARTAN [Concomitant]
     Active Substance: LOSARTAN

REACTIONS (46)
  - Eye pain [Unknown]
  - Blindness unilateral [Unknown]
  - Headache [Unknown]
  - Anxiety [Unknown]
  - Anhedonia [Unknown]
  - Product complaint [Unknown]
  - Product contamination [Unknown]
  - Suspected transmission of an infectious agent via product [Unknown]
  - Off label use [Unknown]
  - Mycotic endophthalmitis [Unknown]
  - Iridocyclitis [Unknown]
  - Retinal detachment [Recovered/Resolved]
  - Urinary tract infection [Unknown]
  - Retinal tear [Recovered/Resolved]
  - Rheumatic fever [Unknown]
  - Obesity [Unknown]
  - Hypertension [Unknown]
  - Cataract nuclear [Unknown]
  - Cataract [Unknown]
  - Conjunctival haemorrhage [Unknown]
  - Ocular hyperaemia [Unknown]
  - Visual impairment [Unknown]
  - Vitreous opacities [Unknown]
  - Dizziness [Unknown]
  - Rhinitis allergic [Unknown]
  - Cough [Unknown]
  - Chest pain [Unknown]
  - Gait disturbance [Unknown]
  - Urinary incontinence [Recovered/Resolved]
  - Blood alkaline phosphatase decreased [Unknown]
  - Bacterial endophthalmitis [Unknown]
  - Rhegmatogenous retinal detachment [Unknown]
  - Corneal epithelium defect [Unknown]
  - Corneal oedema [Unknown]
  - Vision blurred [Unknown]
  - Visual acuity reduced [Unknown]
  - Neurotrophic keratopathy [Unknown]
  - Nausea [Unknown]
  - Depression [Unknown]
  - White blood cell count increased [Unknown]
  - Neutrophil count increased [Unknown]
  - Lymphocyte count increased [Unknown]
  - Haemoglobin decreased [Unknown]
  - Haematocrit decreased [Unknown]
  - Blood glucose decreased [Unknown]
  - Retinal haemorrhage [Unknown]

NARRATIVE: CASE EVENT DATE: 20200814
